FAERS Safety Report 4554558-2 (Version None)
Quarter: 2004Q4

REPORT INFORMATION
  Report Type: 
  Country: None (occurrence: None)
  Receive Date: 20041227
  Receipt Date: 20041214
  Transmission Date: 20050328
  Serious: Yes (Hospitalization)
  Sender: FDA-Public Use
  Company Number: 2004UW21689

PATIENT
  Age: 76 Year
  Sex: Male

DRUGS (18)
  1. CRESTOR [Suspect]
     Dosage: 20 MG HS PO
     Route: 048
     Dates: start: 20040526, end: 20040720
  2. LANOXIN [Concomitant]
  3. CAPOTEN [Concomitant]
  4. K-DUR 10 [Concomitant]
  5. GLUCOPHAGE [Concomitant]
  6. MICRONASE [Concomitant]
  7. PROZAC [Concomitant]
  8. ALBUTEROL [Concomitant]
  9. EXTRA STRENGTH TYLENOL [Concomitant]
  10. LASIX [Concomitant]
  11. ACCUPRIL [Concomitant]
  12. COREG [Concomitant]
  13. GLYBURIDE [Concomitant]
  14. GLUCOVANCE [Concomitant]
  15. VITAMIN E [Concomitant]
  16. VITAMIN A [Concomitant]
  17. VITAMIN B-12 [Concomitant]
  18. GARLIC [Concomitant]

REACTIONS (3)
  - HEPATITIS [None]
  - PNEUMONIA [None]
  - RHABDOMYOLYSIS [None]
